FAERS Safety Report 4781340-3 (Version None)
Quarter: 2005Q3

REPORT INFORMATION
  Report Type: 
  Country: None (occurrence: None)
  Receive Date: 20050928
  Receipt Date: 20050922
  Transmission Date: 20060218
  Serious: Yes (Other)
  Sender: FDA-Public Use
  Company Number: 2005PK01751

PATIENT
  Age: 557 Month
  Sex: Female
  Weight: 66 kg

DRUGS (8)
  1. ARIMIDEX [Suspect]
     Indication: BREAST CANCER
     Route: 048
     Dates: start: 20040831, end: 20041209
  2. ARIMIDEX [Suspect]
     Route: 048
     Dates: start: 20050329, end: 20050621
  3. NOLVADEX [Suspect]
     Indication: BREAST CANCER
     Route: 048
     Dates: start: 20041210, end: 20050105
  4. FEMARA [Suspect]
     Indication: BREAST CANCER
     Dates: start: 20050622, end: 20050804
  5. ENDOXAN [Concomitant]
     Indication: CHEMOTHERAPY
     Dosage: SIX CYCLES
     Dates: start: 20040401, end: 20040801
  6. FARMORUBICIN [Concomitant]
     Indication: CHEMOTHERAPY
     Dosage: SIX CYCLES
     Dates: start: 20040401, end: 20040801
  7. ELTROXIN [Concomitant]
     Indication: HYPOTHYROIDISM
  8. INDERAL LA [Concomitant]
     Indication: HYPERTENSION

REACTIONS (1)
  - TENOSYNOVITIS [None]
